FAERS Safety Report 5147849-8 (Version None)
Quarter: 2006Q4

REPORT INFORMATION
  Report Type: 
  Country: None (occurrence: None)
  Receive Date: 20060918
  Receipt Date: 20050725
  Transmission Date: 20070319
  Serious: Yes (Other)
  Sender: FDA-Public Use
  Company Number: US-JNJFOC-20050705437

PATIENT
  Age: 57 Year
  Sex: Male

DRUGS (1)
  1. TOPAMAX [Suspect]
     Indication: PERIPHERAL VASCULAR DISORDER
     Dosage: 25 MG, ORAL
     Route: 048
     Dates: start: 20000101

REACTIONS (1)
  - WEIGHT DECREASED [None]
